FAERS Safety Report 4380896-2 (Version None)
Quarter: 2004Q2

REPORT INFORMATION
  Report Type: 
  Country: None (occurrence: None)
  Receive Date: 20040616
  Receipt Date: 20040604
  Transmission Date: 20050107
  Serious: Yes (Other)
  Sender: FDA-Public Use
  Company Number: GB-JNJFOC-20040601192

PATIENT
  Age: 15 Year
  Sex: Female
  Weight: 50 kg

DRUGS (2)
  1. REMICADE [Suspect]
     Indication: CROHN'S DISEASE
     Dosage: 250 MG, INTRAVENOUS (SEE IMAGE)
     Route: 042
     Dates: start: 20040421, end: 20040421
  2. AZATHIOPRINE (UNKNOWN) [Concomitant]

REACTIONS (1)
  - INFUSION RELATED REACTION [None]
